FAERS Safety Report 4714264-8 (Version None)
Quarter: 2005Q3

REPORT INFORMATION
  Report Type: 
  Country: None (occurrence: None)
  Receive Date: 20050714
  Receipt Date: 20050318
  Transmission Date: 20060218
  Serious: Yes (Hospitalization)
  Sender: FDA-Public Use
  Company Number: PHEH2005US03399

PATIENT
  Sex: Male

DRUGS (2)
  1. ZOMETA [Suspect]
  2. ANDROGEN DEPRIVATION THERAPY [Concomitant]

REACTIONS (3)
  - ASTHENIA [None]
  - DEEP VEIN THROMBOSIS [None]
  - MYALGIA [None]
